FAERS Safety Report 5011880-3 (Version None)
Quarter: 2006Q2

REPORT INFORMATION
  Report Type: 
  Country: None (occurrence: None)
  Receive Date: 20060526
  Receipt Date: 20060223
  Transmission Date: 20061013
  Serious: Yes (Hospitalization)
  Sender: FDA-Public Use
  Company Number: FR-SANOFI-SYNTHELABO-F01200600550

PATIENT
  Sex: Male

DRUGS (3)
  1. RADIOTHERAPY [Concomitant]
     Route: 050
     Dates: end: 20060220
  2. FLUOROURACIL [Suspect]
     Route: 041
     Dates: start: 20060213, end: 20060217
  3. OXALIPLATIN [Suspect]
     Indication: COLON CANCER
     Route: 041
     Dates: start: 20060213, end: 20060213

REACTIONS (4)
  - ANOREXIA [None]
  - DIARRHOEA [None]
  - GENERAL PHYSICAL HEALTH DETERIORATION [None]
  - VOMITING [None]
